FAERS Safety Report 12370560 (Version 2)
Quarter: 2016Q2

REPORT INFORMATION
  Report Type: Report from Study
  Country: US (occurrence: US)
  Receive Date: 20160516
  Receipt Date: 20160524
  Transmission Date: 20160815
  Serious: Yes (Death, Other)
  Sender: FDA-Public Use
  Company Number: US-BEH-2016062510

PATIENT
  Age: 62 Year
  Sex: Female
  Weight: 59.4 kg

DRUGS (16)
  1. ACYCLOVIR. [Concomitant]
     Active Substance: ACYCLOVIR
  2. OXYCODONE [Concomitant]
     Active Substance: OXYCODONE
  3. TACROLIMUS. [Concomitant]
     Active Substance: TACROLIMUS
  4. LORAZEPAM. [Concomitant]
     Active Substance: LORAZEPAM
  5. VORICONAZOLE. [Concomitant]
     Active Substance: VORICONAZOLE
  6. HEPARIN [Concomitant]
     Active Substance: HEPARIN SODIUM
  7. LIDOCAINE. [Concomitant]
     Active Substance: LIDOCAINE
  8. OMEPRAZOLE. [Concomitant]
     Active Substance: OMEPRAZOLE
  9. ZEMAIRA [Suspect]
     Active Substance: .ALPHA.1-PROTEINASE INHIBITOR HUMAN
     Indication: ACUTE GRAFT VERSUS HOST DISEASE
     Dosage: MONDAY AND THURSDAY (RECEIVED 3 DOSES)
     Route: 042
     Dates: start: 20150507, end: 20150514
  10. DIPHENHYDRAMINE. [Concomitant]
     Active Substance: DIPHENHYDRAMINE
  11. SODIUM CHLORIDE 0.9% [Concomitant]
     Active Substance: SODIUM CHLORIDE
  12. URSODIOL. [Concomitant]
     Active Substance: URSODIOL
  13. AMLODIPINE [Concomitant]
     Active Substance: AMLODIPINE BESYLATE
  14. ONDANSETRON [Concomitant]
     Active Substance: ONDANSETRON
  15. VAGIFEM [Concomitant]
     Active Substance: ESTRADIOL
  16. VANCOMYCIN [Concomitant]
     Active Substance: VANCOMYCIN

REACTIONS (2)
  - Acute graft versus host disease [Fatal]
  - Drug ineffective [Unknown]

NARRATIVE: CASE EVENT DATE: 20150521
